FAERS Safety Report 15908004 (Version 4)
Quarter: 2019Q2

REPORT INFORMATION
  Report Type: Spontaneous
  Country: US (occurrence: US)
  Receive Date: 20190204
  Receipt Date: 20190613
  Transmission Date: 20190711
  Serious: Yes (Other)
  Sender: FDA-Public Use
  Company Number: US-ASTRAZENECA-2018SF14510

PATIENT
  Sex: Female
  Weight: 65.8 kg

DRUGS (38)
  1. ASPIRIN. [Concomitant]
     Active Substance: ASPIRIN
  2. HYDROCODONE BITARTRATE AND ACETAMINOPHEN [Concomitant]
     Active Substance: ACETAMINOPHEN\HYDROCODONE BITARTRATE
     Dates: start: 20161202
  3. DETROL LA [Concomitant]
     Active Substance: TOLTERODINE TARTRATE
  4. LEVOFLOXACIN. [Concomitant]
     Active Substance: LEVOFLOXACIN
  5. LINZESS [Concomitant]
     Active Substance: LINACLOTIDE
  6. CHANTIX [Concomitant]
     Active Substance: VARENICLINE TARTRATE
  7. ATORVASTATIN [Concomitant]
     Active Substance: ATORVASTATIN
     Dates: start: 20161202
  8. ESTRADIOL. [Concomitant]
     Active Substance: ESTRADIOL
  9. BUSPIRONE [Concomitant]
     Active Substance: BUSPIRONE HYDROCHLORIDE
  10. VITAMIN D [Concomitant]
     Active Substance: VITAMIN D NOS
  11. DEXILANT [Suspect]
     Active Substance: DEXLANSOPRAZOLE
     Indication: GASTROOESOPHAGEAL REFLUX DISEASE
     Route: 048
     Dates: start: 20170330
  12. NAPROXEN. [Concomitant]
     Active Substance: NAPROXEN
  13. CRESTOR [Concomitant]
     Active Substance: ROSUVASTATIN CALCIUM
  14. LOSARTAN. [Concomitant]
     Active Substance: LOSARTAN
  15. NAPROXEN. [Concomitant]
     Active Substance: NAPROXEN
  16. GEMFIBROZIL. [Concomitant]
     Active Substance: GEMFIBROZIL
  17. DEXILANT [Suspect]
     Active Substance: DEXLANSOPRAZOLE
     Indication: GASTROOESOPHAGEAL REFLUX DISEASE
     Route: 065
     Dates: start: 2000, end: 2009
  18. AMITRIPTYLINE [Concomitant]
     Active Substance: AMITRIPTYLINE
  19. LEVOTHYROXINE. [Concomitant]
     Active Substance: LEVOTHYROXINE
  20. TRAZODONE [Concomitant]
     Active Substance: TRAZODONE HYDROCHLORIDE
  21. PANTOPRAZOLE [Concomitant]
     Active Substance: PANTOPRAZOLE
  22. PENICILLIN [Concomitant]
     Active Substance: PENICILLIN
  23. NEXIUM [Suspect]
     Active Substance: ESOMEPRAZOLE MAGNESIUM
     Indication: GASTROOESOPHAGEAL REFLUX DISEASE
     Dosage: 40 MG, UNKNOWN
     Route: 048
     Dates: start: 2000, end: 2009
  24. NEXIUM [Suspect]
     Active Substance: ESOMEPRAZOLE MAGNESIUM
     Indication: GASTROOESOPHAGEAL REFLUX DISEASE
     Route: 048
     Dates: start: 20160125
  25. BUSPIRON [Concomitant]
     Active Substance: BUSPIRONE HYDROCHLORIDE
  26. TRAZODONE [Concomitant]
     Active Substance: TRAZODONE HYDROCHLORIDE
  27. LISINOPRIL. [Concomitant]
     Active Substance: LISINOPRIL
  28. GABAPENTIN. [Concomitant]
     Active Substance: GABAPENTIN
     Dates: start: 20160701
  29. MAGNESIUM OXIDE. [Concomitant]
     Active Substance: MAGNESIUM OXIDE
  30. SIMVASTATIN. [Concomitant]
     Active Substance: SIMVASTATIN
  31. DEXILANT [Suspect]
     Active Substance: DEXLANSOPRAZOLE
     Indication: GASTROOESOPHAGEAL REFLUX DISEASE
     Dosage: 30 MG, UNKNOWN
     Route: 065
     Dates: start: 2000, end: 2017
  32. PANTOPRAZOLE [Suspect]
     Active Substance: PANTOPRAZOLE
     Indication: GASTROOESOPHAGEAL REFLUX DISEASE
     Dosage: 40 MG, UNKNOWN
     Route: 065
     Dates: start: 2016
  33. PREMARIN [Concomitant]
     Active Substance: ESTROGENS, CONJUGATED
  34. AMITRIPTYLINE [Concomitant]
     Active Substance: AMITRIPTYLINE
  35. NEXIUM [Suspect]
     Active Substance: ESOMEPRAZOLE MAGNESIUM
     Indication: GASTROOESOPHAGEAL REFLUX DISEASE
     Route: 048
     Dates: start: 20060906
  36. DEXILANT [Suspect]
     Active Substance: DEXLANSOPRAZOLE
     Indication: GASTROOESOPHAGEAL REFLUX DISEASE
     Route: 048
     Dates: start: 20160329
  37. LEVOXYL [Concomitant]
     Active Substance: LEVOTHYROXINE SODIUM
  38. PENICILLIN [Concomitant]
     Active Substance: PENICILLIN

REACTIONS (3)
  - Renal failure [Unknown]
  - Chronic kidney disease [Not Recovered/Not Resolved]
  - Acute kidney injury [Unknown]
